FAERS Safety Report 8151575-0 (Version None)
Quarter: 2012Q1

REPORT INFORMATION
  Report Type: 
  Country: None (occurrence: None)
  Receive Date: 20120220
  Receipt Date: 20120217
  Transmission Date: 20120608
  Serious: Yes (Other)
  Sender: FDA-Public Use
  Company Number: NL-AMGEN-NLDSP2012010548

PATIENT
  Age: 60 Year
  Sex: Female

DRUGS (3)
  1. NPLATE [Suspect]
     Indication: IDIOPATHIC THROMBOCYTOPENIC PURPURA
     Dosage: 6 MUG/KG, QWK
     Route: 058
     Dates: start: 20110201
  2. PREDNISONE [Concomitant]
     Dosage: 30 MG, UNK
     Dates: end: 20110911
  3. PREDNISONE [Concomitant]
     Dosage: 5 MG, UNK
     Dates: start: 20110911

REACTIONS (1)
  - THERAPEUTIC RESPONSE DECREASED [None]
